FAERS Safety Report 6467838-0 (Version None)
Quarter: 2009Q4

REPORT INFORMATION
  Report Type: 
  Country: None (occurrence: None)
  Receive Date: 20091202
  Receipt Date: 20091120
  Transmission Date: 20100525
  Serious: Yes (Hospitalization, Other)
  Sender: FDA-Public Use
  Company Number: JP-PFIZER INC-2008035711

PATIENT
  Sex: Female

DRUGS (10)
  1. SOLANAX [Suspect]
     Dosage: 0.8 MG, 1X/DAY
     Route: 048
  2. NORVASC [Suspect]
     Indication: BLOOD PRESSURE MANAGEMENT
     Dosage: 2.5MG/DAY
     Route: 048
     Dates: end: 20080101
  3. KARY UNI [Concomitant]
     Route: 031
  4. LENDORMIN [Concomitant]
     Indication: ABDOMINAL PAIN
     Route: 048
  5. OLMETEC [Concomitant]
     Dosage: DAILY
     Route: 048
     Dates: start: 20080101
  6. MYSLEE [Concomitant]
     Route: 048
  7. SELBEX [Concomitant]
     Route: 048
  8. DEPAS [Concomitant]
     Route: 048
  9. AMLODIPINE [Concomitant]
     Route: 048
     Dates: start: 20080801
  10. MEILAX [Concomitant]
     Route: 048

REACTIONS (17)
  - ABDOMINAL PAIN [None]
  - BLOOD PRESSURE INCREASED [None]
  - BUCCAL MUCOSAL ROUGHENING [None]
  - CONFUSIONAL STATE [None]
  - DIZZINESS [None]
  - EYE PAIN [None]
  - FEELING ABNORMAL [None]
  - HEADACHE [None]
  - HOT FLUSH [None]
  - INJURY [None]
  - INSOMNIA [None]
  - MUSCULOSKELETAL STIFFNESS [None]
  - OEDEMA PERIPHERAL [None]
  - OROPHARYNGEAL PAIN [None]
  - PARAESTHESIA ORAL [None]
  - RASH [None]
  - RENAL FUNCTION TEST ABNORMAL [None]
